FAERS Safety Report 5565493-5 (Version None)
Quarter: 2007Q4

REPORT INFORMATION
  Report Type: 
  Country: None (occurrence: None)
  Receive Date: 20071218
  Receipt Date: 20071206
  Transmission Date: 20080405
  Serious: Yes (Other)
  Sender: FDA-Public Use
  Company Number: US-PFIZER INC-2007102999

PATIENT
  Sex: Female

DRUGS (1)
  1. LYRICA [Suspect]
     Indication: DIABETIC NEUROPATHY

REACTIONS (5)
  - BLOOD SODIUM DECREASED [None]
  - GAIT DISTURBANCE [None]
  - HALLUCINATION [None]
  - HYPERGLYCAEMIA [None]
  - MUSCLE TWITCHING [None]
